FAERS Safety Report 6988787-5 (Version None)
Quarter: 2010Q3

REPORT INFORMATION
  Report Type: 
  Country: None (occurrence: None)
  Receive Date: 20100916
  Receipt Date: 20100914
  Transmission Date: 20110219
  Serious: Yes (Other)
  Sender: FDA-Public Use
  Company Number: TN-ROXANE LABORATORIES, INC.-2010-RO-01224RO

PATIENT
  Sex: Female

DRUGS (2)
  1. LIDOCAINE [Suspect]
     Indication: APPLICATION SITE ANAESTHESIA
     Dosage: 3 ML
  2. EPINEPHRINE [Suspect]
     Indication: APPLICATION SITE ANAESTHESIA

REACTIONS (6)
  - BLISTER [None]
  - ERYTHEMA [None]
  - PAIN [None]
  - SKIN NECROSIS [None]
  - SWELLING [None]
  - SYNCOPE [None]
